FAERS Safety Report 6282610-2 (Version None)
Quarter: 2009Q3

REPORT INFORMATION
  Report Type: 
  Country: None (occurrence: None)
  Receive Date: 20090724
  Receipt Date: 20090715
  Transmission Date: 20100115
  Serious: Yes (Other)
  Sender: FDA-Public Use
  Company Number: PHHY2009AU29090

PATIENT

DRUGS (2)
  1. FEMARA [Suspect]
  2. ZOMETA [Suspect]

REACTIONS (1)
  - NEUROPATHY PERIPHERAL [None]
